FAERS Safety Report 17361864 (Version 5)
Quarter: 2020Q1

REPORT INFORMATION
  Report Type: Report from Study
  Country: JP (occurrence: JP)
  Receive Date: 20200203
  Receipt Date: 20200309
  Transmission Date: 20200409
  Serious: Yes (Death, Hospitalization, Other)
  Sender: FDA-Public Use
  Company Number: JP-PFIZER INC-2020041706

PATIENT
  Age: 14 Year
  Sex: Male
  Weight: 32 kg

DRUGS (6)
  1. BICILLIN G [BENZATHINE BENZYLPENICILLIN] [Concomitant]
     Indication: ANTIBIOTIC PROPHYLAXIS
     Dosage: UNK UNK, 1X/DAY
     Route: 048
     Dates: start: 20140407
  2. SIROLIMUS. [Suspect]
     Active Substance: SIROLIMUS
     Indication: LYMPHANGIOPATHY
     Dosage: 2 MG, 1X/DAY
     Route: 048
     Dates: start: 20191031, end: 20200123
  3. XARELTO [Concomitant]
     Active Substance: RIVAROXABAN
     Indication: ANTICOAGULANT THERAPY
     Dosage: 1 DF, 1X/DAY
     Route: 048
     Dates: start: 20130204
  4. SIROLIMUS. [Suspect]
     Active Substance: SIROLIMUS
     Indication: MALFORMATION VENOUS
  5. SIROLIMUS. [Suspect]
     Active Substance: SIROLIMUS
     Indication: HAEMANGIOMA
  6. XARELTO [Concomitant]
     Active Substance: RIVAROXABAN
     Dosage: 1 MG, 1X/DAY
     Route: 048
     Dates: start: 20160314

REACTIONS (3)
  - Gastroenteritis bacterial [Fatal]
  - Severe invasive streptococcal infection [Fatal]
  - Respiratory disorder [Unknown]

NARRATIVE: CASE EVENT DATE: 20200123
